FAERS Safety Report 14257203 (Version 1)
Quarter: 2017Q4

REPORT INFORMATION
  Report Type: Report from Study
  Country: US (occurrence: US)
  Receive Date: 20171206
  Receipt Date: 20171206
  Transmission Date: 20180321
  Serious: Yes (Other)
  Sender: FDA-Public Use
  Company Number: US-CIPLA (EU) LIMITED-2017US21926

PATIENT

DRUGS (1)
  1. IRINOTECAN [Suspect]
     Active Substance: IRINOTECAN
     Indication: MALIGNANT GLIOMA
     Dosage: UNK, EVERY 3 WEEKS
     Route: 042

REACTIONS (2)
  - Fatigue [Unknown]
  - Lethargy [Unknown]
